FAERS Safety Report 11884550 (Version 1)
Quarter: 2016Q1

REPORT INFORMATION
  Report Type: Spontaneous
  Country: US (occurrence: US)
  Receive Date: 20160104
  Receipt Date: 20160104
  Transmission Date: 20160526
  Serious: Yes (Other)
  Sender: FDA-Public Use
  Company Number: US-BEH-2015057247

PATIENT
  Sex: Female
  Weight: 54 kg

DRUGS (22)
  1. PROAIR HFA [Concomitant]
     Active Substance: ALBUTEROL SULFATE
  2. IMDUR [Concomitant]
     Active Substance: ISOSORBIDE MONONITRATE
  3. DIPHENHYDRAMINE. [Concomitant]
     Active Substance: DIPHENHYDRAMINE
  4. CODEINE-GUAIFENESIN [Concomitant]
     Active Substance: CODEINE PHOSPHATE\GUAIFENESIN
  5. CRESTOR [Concomitant]
     Active Substance: ROSUVASTATIN CALCIUM
  6. MIRALAX [Concomitant]
     Active Substance: POLYETHYLENE GLYCOL 3350
  7. ACETAMINOPHEN. [Concomitant]
     Active Substance: ACETAMINOPHEN
  8. PULMICORT TURBUHALER [Concomitant]
     Active Substance: BUDESONIDE
  9. NITROGLYCERIN. [Concomitant]
     Active Substance: NITROGLYCERIN
  10. HIZENTRA [Suspect]
     Active Substance: HUMAN IMMUNOGLOBULIN G
     Indication: IMMUNODEFICIENCY COMMON VARIABLE
     Route: 058
     Dates: start: 20141008
  11. XANAX [Concomitant]
     Active Substance: ALPRAZOLAM
  12. ALBUTEROL. [Concomitant]
     Active Substance: ALBUTEROL
  13. ZYRTEC [Concomitant]
     Active Substance: CETIRIZINE HYDROCHLORIDE
  14. SINGULAIR [Concomitant]
     Active Substance: MONTELUKAST SODIUM
  15. EPIPEN [Concomitant]
     Active Substance: EPINEPHRINE
  16. AMBIEN [Concomitant]
     Active Substance: ZOLPIDEM TARTRATE
  17. PREMARIN [Concomitant]
     Active Substance: ESTROGENS, CONJUGATED
  18. ASPIRIN. [Concomitant]
     Active Substance: ASPIRIN
  19. SYNTHROID [Concomitant]
     Active Substance: LEVOTHYROXINE SODIUM
  20. LAMICTAL [Concomitant]
     Active Substance: LAMOTRIGINE
  21. CELEXA [Concomitant]
     Active Substance: CITALOPRAM HYDROBROMIDE
  22. TOPAMAX [Concomitant]
     Active Substance: TOPIRAMATE

REACTIONS (4)
  - Tracheal disorder [Unknown]
  - Urticaria [Unknown]
  - Rash [Unknown]
  - Upper respiratory tract infection [Unknown]
